FAERS Safety Report 5793771-3 (Version None)
Quarter: 2008Q2

REPORT INFORMATION
  Report Type: 
  Country: None (occurrence: None)
  Receive Date: 20080627
  Receipt Date: 20080616
  Transmission Date: 20081010
  Serious: Yes (Other)
  Sender: FDA-Public Use
  Company Number: KR-GENENTECH-261554

PATIENT
  Age: 18 Year
  Sex: Female

DRUGS (2)
  1. AVASTIN [Suspect]
     Indication: CORNEAL NEOVASCULARISATION
     Dosage: UNK, UNK
  2. ARTIFICIAL TEARS [Concomitant]
     Indication: DRUG USE FOR UNKNOWN INDICATION

REACTIONS (1)
  - CORNEAL EROSION [None]
